FAERS Safety Report 4829240-4 (Version None)
Quarter: 2005Q4

REPORT INFORMATION
  Report Type: 
  Country: None (occurrence: None)
  Receive Date: 20051028
  Receipt Date: 20050909
  Transmission Date: 20060501
  Serious: No
  Sender: FDA-Public Use
  Company Number: COT_0209_2005

PATIENT
  Age: 46 Year
  Sex: Female
  Weight: 63.9572 kg

DRUGS (5)
  1. VENTAVIS [Suspect]
     Indication: PULMONARY HYPERTENSION
     Dosage: 5 MCG VARIABLE IH
     Route: 055
     Dates: start: 20050815
  2. LASIX [Concomitant]
  3. K-TAB [Concomitant]
  4. MULTI-VITAMIN [Concomitant]
  5. TRACLEER [Concomitant]

REACTIONS (1)
  - MUSCULOSKELETAL DISCOMFORT [None]
